FAERS Safety Report 9470490 (Version 1)
Quarter: 2013Q3

REPORT INFORMATION
  Report Type: Spontaneous
  Country: GB (occurrence: None)
  Receive Date: 20130815
  Receipt Date: 20130815
  Transmission Date: 20140515
  Serious: Yes (Other)
  Sender: FDA-Public Use
  Company Number: KAD201308-000972

PATIENT
  Sex: 0

DRUGS (2)
  1. RIBAVIRIN (RIBAVIRIN) [Suspect]
     Indication: CHRONIC HEPATITIS C
  2. INTERFERON ALFA-2B (INTERFERON ALFA 2B) [Suspect]
     Indication: CHRONIC HEPATITIS C

REACTIONS (1)
  - Parkinsonism [None]
